FAERS Safety Report 6862285-1 (Version None)
Quarter: 2010Q3

REPORT INFORMATION
  Report Type: 
  Country: None (occurrence: None)
  Receive Date: 20100721
  Receipt Date: 20100709
  Transmission Date: 20110219
  Serious: Yes (Death, Hospitalization, Other)
  Sender: FDA-Public Use
  Company Number: BR-BAYER-201032511GPV

PATIENT
  Age: 59 Year
  Sex: Male
  Weight: 149 kg

DRUGS (17)
  1. ASPIRIN [Suspect]
     Indication: ATRIAL FIBRILLATION
     Dates: start: 20010401
  2. ASPIRIN [Suspect]
     Dates: start: 20060401
  3. FUROSEMIDE [Suspect]
     Indication: PRODUCT USED FOR UNKNOWN INDICATION
     Dates: start: 20010401
  4. FUROSEMIDE [Suspect]
     Dates: start: 20060401
  5. FUROSEMIDE [Suspect]
  6. CAPTOPRIL [Suspect]
     Indication: PRODUCT USED FOR UNKNOWN INDICATION
     Dates: start: 20060401
  7. WARFARIN [Suspect]
     Indication: ATRIAL FIBRILLATION
     Dates: start: 20060401
  8. DIGOXIN [Suspect]
     Indication: PRODUCT USED FOR UNKNOWN INDICATION
     Dates: start: 20060401
  9. ENALAPRIL MALEATE [Concomitant]
     Indication: PRODUCT USED FOR UNKNOWN INDICATION
     Dates: start: 20010401
  10. METFORMIN [Concomitant]
     Indication: PRODUCT USED FOR UNKNOWN INDICATION
     Dates: start: 20010401
  11. METFORMIN [Concomitant]
     Dates: start: 20040201
  12. AMLODIPINE [Concomitant]
     Indication: PRODUCT USED FOR UNKNOWN INDICATION
     Dates: start: 20010401
  13. CHLORTHALIDONE [Concomitant]
     Indication: PRODUCT USED FOR UNKNOWN INDICATION
     Dates: start: 20010401
  14. METHYLDOPA [Concomitant]
     Indication: PRODUCT USED FOR UNKNOWN INDICATION
     Dates: start: 20010401
  15. SPIRONOLACTONE [Concomitant]
     Indication: PRODUCT USED FOR UNKNOWN INDICATION
     Dates: start: 20010401
  16. CEFEPIME [Concomitant]
     Indication: BRONCHOPNEUMONIA
     Dates: start: 20060521
  17. VANCOMYCIN [Concomitant]
     Indication: BRONCHOPNEUMONIA
     Dates: start: 20060521

REACTIONS (3)
  - CARDIO-RESPIRATORY ARREST [None]
  - SEPTIC SHOCK [None]
  - SUBARACHNOID HAEMORRHAGE [None]
